FAERS Safety Report 5696581-0 (Version None)
Quarter: 2008Q2

REPORT INFORMATION
  Report Type: 
  Country: None (occurrence: None)
  Receive Date: 20080404
  Receipt Date: 20080404
  Transmission Date: 20081010
  Serious: Yes (Hospitalization)
  Sender: FDA-Public Use
  Company Number: None

PATIENT
  Age: 79 Year
  Sex: Male

DRUGS (1)
  1. FUROSEMIDE [Suspect]
     Indication: OEDEMA
     Dates: start: 20080102

REACTIONS (2)
  - DIZZINESS [None]
  - FALL [None]
